FAERS Safety Report 23578767 (Version 2)
Quarter: 2024Q1

REPORT INFORMATION
  Report Type: Spontaneous
  Country: ES (occurrence: ES)
  Receive Date: 20240229
  Receipt Date: 20240306
  Transmission Date: 20240410
  Serious: Yes (Other)
  Sender: FDA-Public Use
  Company Number: ES-AMGEN-ESPSP2024038608

PATIENT
  Age: 65 Year
  Sex: Female

DRUGS (2)
  1. OTEZLA [Suspect]
     Active Substance: APREMILAST
     Indication: Product used for unknown indication
     Dosage: UNK
     Route: 065
  2. GUSELKUMAB [Concomitant]
     Active Substance: GUSELKUMAB
     Dosage: UNK

REACTIONS (1)
  - Erysipelas [Recovered/Resolved]
